FAERS Safety Report 14606064 (Version 1)
Quarter: 2018Q1

REPORT INFORMATION
  Report Type: Report from Study
  Country: CA (occurrence: CA)
  Receive Date: 20180307
  Receipt Date: 20180307
  Transmission Date: 20180509
  Serious: Yes (Hospitalization, Other)
  Sender: FDA-Public Use
  Company Number: CA-BIOGEN-2018BI00535403

PATIENT
  Sex: Female

DRUGS (1)
  1. FAMPYRA [Suspect]
     Active Substance: DALFAMPRIDINE
     Indication: GAIT DISTURBANCE
     Route: 048
     Dates: start: 20130517

REACTIONS (9)
  - Feeling abnormal [Recovered/Resolved]
  - Malaise [Unknown]
  - Pancreatitis [Recovered/Resolved]
  - Akinesia [Unknown]
  - Confusional state [Recovered/Resolved]
  - Hypothermia [Recovered/Resolved]
  - Loss of consciousness [Recovered/Resolved]
  - Cognitive disorder [Recovered/Resolved]
  - Dysarthria [Recovered/Resolved]

NARRATIVE: CASE EVENT DATE: 2017
